FAERS Safety Report 16115340 (Version 1)
Quarter: 2019Q1

REPORT INFORMATION
  Report Type: Other
  Country: CA (occurrence: CA)
  Receive Date: 20190325
  Receipt Date: 20190325
  Transmission Date: 20190418
  Serious: Yes (Death, Other)
  Sender: FDA-Public Use
  Company Number: CA-PFIZER INC-2019125887

PATIENT

DRUGS (23)
  1. BICNU [Suspect]
     Active Substance: CARMUSTINE
     Indication: B-CELL LYMPHOMA RECURRENT
     Dosage: UNK
     Route: 065
  2. INTERFERON ALFA-2A [Suspect]
     Active Substance: INTERFERON ALFA-2A
     Indication: B-CELL LYMPHOMA RECURRENT
     Dosage: UNK (3 EVERY 1 WEEK(S))
     Route: 058
  3. ETOPOSIDE. [Suspect]
     Active Substance: ETOPOSIDE
     Indication: B-CELL LYMPHOMA RECURRENT
     Dosage: UNK
     Route: 065
  4. ETOPOSIDE. [Suspect]
     Active Substance: ETOPOSIDE
     Dosage: 40 MG/M2, 1X/DAY
     Route: 065
  5. VINCRISTINE SULFATE. [Suspect]
     Active Substance: VINCRISTINE SULFATE
     Indication: B-CELL LYMPHOMA RECURRENT
     Dosage: 1.4 MG/M2, UNK
     Route: 042
  6. CYCLOPHOSPHAMIDE. [Suspect]
     Active Substance: CYCLOPHOSPHAMIDE
     Dosage: 750 MG/M2, UNK
     Route: 042
  7. FILGRASTIM [Suspect]
     Active Substance: FILGRASTIM
     Indication: B-CELL LYMPHOMA RECURRENT
     Dosage: 10 UG/KG, UNK
     Route: 065
  8. CYTARABINE. [Suspect]
     Active Substance: CYTARABINE
     Dosage: UNK
     Route: 042
  9. CISPLATIN. [Suspect]
     Active Substance: CISPLATIN
     Dosage: 100 MG/M2, UNK
     Route: 042
  10. METHYLPREDNISOLONE SODIUM SUCCINATE. [Suspect]
     Active Substance: METHYLPREDNISOLONE SODIUM SUCCINATE
     Indication: B-CELL LYMPHOMA RECURRENT
     Dosage: 500 MG, 1X/DAY
     Route: 042
  11. DEXAMETHASONE. [Suspect]
     Active Substance: DEXAMETHASONE
     Indication: B-CELL LYMPHOMA RECURRENT
     Dosage: 40 MG/M2, UNK
     Route: 048
  12. RITUXIMAB. [Suspect]
     Active Substance: RITUXIMAB
     Dosage: 375 MG/M2, WEEKLY
     Route: 042
  13. CARMUSTINE. [Suspect]
     Active Substance: CARMUSTINE
     Indication: B-CELL LYMPHOMA RECURRENT
     Dosage: UNK
     Route: 065
  14. FLUDARABINE PHOSPHATE. [Suspect]
     Active Substance: FLUDARABINE PHOSPHATE
     Indication: B-CELL LYMPHOMA RECURRENT
     Dosage: UNK
     Route: 065
  15. CYCLOPHOSPHAMIDE. [Suspect]
     Active Substance: CYCLOPHOSPHAMIDE
     Indication: B-CELL LYMPHOMA RECURRENT
     Dosage: UNK
     Route: 065
  16. RITUXIMAB. [Suspect]
     Active Substance: RITUXIMAB
     Indication: B-CELL LYMPHOMA RECURRENT
     Dosage: 375 MG/M2, UNK
     Route: 042
  17. VP-16 [Suspect]
     Active Substance: ETOPOSIDE
     Indication: B-CELL LYMPHOMA RECURRENT
     Dosage: 40 MG/M2, 1X/DAY
  18. ARA-C [Suspect]
     Active Substance: CYTARABINE
     Indication: B-CELL LYMPHOMA RECURRENT
     Dosage: UNK
     Route: 042
  19. DOXORUBICINE [DOXORUBICIN] [Suspect]
     Active Substance: DOXORUBICIN
     Indication: B-CELL LYMPHOMA RECURRENT
     Dosage: 50 MG/M2, UNK
     Route: 042
  20. PREDNISONE. [Suspect]
     Active Substance: PREDNISONE
     Indication: B-CELL LYMPHOMA RECURRENT
     Dosage: 100 MG, UNK
     Route: 048
  21. RITUXIMAB. [Suspect]
     Active Substance: RITUXIMAB
     Dosage: 375 MG/M2, UNK (4 EVERY 1 WEEK(S))
     Route: 042
  22. CISPLATIN. [Suspect]
     Active Substance: CISPLATIN
     Indication: B-CELL LYMPHOMA RECURRENT
     Dosage: 25 MG/M2, UNK
     Route: 042
  23. CYTARABINE. [Suspect]
     Active Substance: CYTARABINE
     Indication: B-CELL LYMPHOMA RECURRENT
     Dosage: 2000 MG/M2, UNK
     Route: 042

REACTIONS (22)
  - Herpes zoster [Fatal]
  - Hypogammaglobulinaemia [Fatal]
  - Non-small cell lung cancer [Fatal]
  - Respiratory disorder [Fatal]
  - Atrial fibrillation [Fatal]
  - Basal cell carcinoma [Fatal]
  - Colorectal adenocarcinoma [Fatal]
  - Squamous cell carcinoma [Fatal]
  - Thrombocytopenic purpura [Fatal]
  - Second primary malignancy [Fatal]
  - Bronchitis [Fatal]
  - Interstitial lung disease [Fatal]
  - Fungal infection [Fatal]
  - Thyroid cancer [Fatal]
  - Cytopenia [Fatal]
  - Myelodysplastic syndrome [Fatal]
  - Depression [Fatal]
  - Fatigue [Fatal]
  - Haemolytic uraemic syndrome [Fatal]
  - Infection [Fatal]
  - Pulmonary fibrosis [Fatal]
  - Respiratory tract infection [Fatal]
